FAERS Safety Report 14946197 (Version 4)
Quarter: 2019Q4

REPORT INFORMATION
  Report Type: Report from Study
  Country: CA (occurrence: CA)
  Receive Date: 20180529
  Receipt Date: 20191125
  Transmission Date: 20200122
  Serious: Yes (Hospitalization, Disabling, Other)
  Sender: FDA-Public Use
  Company Number: CA-ROCHE-1630257

PATIENT
  Age: 68 Year
  Sex: Female
  Weight: 76 kg

DRUGS (16)
  1. ALENDRONATE [Concomitant]
     Active Substance: ALENDRONATE SODIUM
  2. RABEPRAZOLE [Concomitant]
     Active Substance: RABEPRAZOLE
  3. XARELTO [Concomitant]
     Active Substance: RIVAROXABAN
  4. FUROSEMIDE. [Concomitant]
     Active Substance: FUROSEMIDE
  5. NAPROXEN. [Concomitant]
     Active Substance: NAPROXEN
  6. PREDNISONE. [Concomitant]
     Active Substance: PREDNISONE
     Route: 065
     Dates: start: 20151018, end: 20151031
  7. PREDNISONE. [Concomitant]
     Active Substance: PREDNISONE
     Dosage: 5MG X2D;4MG X2D;3MG X2D;2MG X10D;1MGX100D
     Route: 065
     Dates: start: 20160307
  8. VITAMIN B3 [Concomitant]
     Active Substance: NIACIN
  9. AMLODIPINE [Concomitant]
     Active Substance: AMLODIPINE BESYLATE
  10. PREDNISONE. [Concomitant]
     Active Substance: PREDNISONE
     Route: 065
  11. ACTEMRA [Suspect]
     Active Substance: TOCILIZUMAB
     Route: 042
     Dates: start: 20150929
  12. ACTEMRA [Suspect]
     Active Substance: TOCILIZUMAB
     Route: 042
     Dates: start: 20171222
  13. ACTEMRA [Suspect]
     Active Substance: TOCILIZUMAB
     Indication: RHEUMATOID ARTHRITIS
     Dosage: FORM STRENGTH: 20 MG/ML
     Route: 042
     Dates: start: 20150902
  14. ACTEMRA [Suspect]
     Active Substance: TOCILIZUMAB
     Route: 042
     Dates: start: 20160817
  15. ACTEMRA [Suspect]
     Active Substance: TOCILIZUMAB
     Route: 042
     Dates: start: 20170705
  16. MORPHINE [Concomitant]
     Active Substance: MORPHINE

REACTIONS (23)
  - Blood pressure fluctuation [Unknown]
  - Gait disturbance [Unknown]
  - Blood pressure systolic increased [Unknown]
  - Rash [Not Recovered/Not Resolved]
  - Blood pressure systolic decreased [Unknown]
  - Cellulitis [Unknown]
  - Pain in extremity [Not Recovered/Not Resolved]
  - Hernia [Not Recovered/Not Resolved]
  - Blood pressure diastolic increased [Unknown]
  - Rheumatoid arthritis [Not Recovered/Not Resolved]
  - Chest discomfort [Not Recovered/Not Resolved]
  - Blood pressure diastolic decreased [Unknown]
  - Uterine prolapse [Not Recovered/Not Resolved]
  - Rheumatoid arthritis [Not Recovered/Not Resolved]
  - Arthralgia [Recovered/Resolved]
  - Rash [Recovering/Resolving]
  - Dyspepsia [Not Recovered/Not Resolved]
  - Musculoskeletal pain [Recovering/Resolving]
  - Hiatus hernia [Not Recovered/Not Resolved]
  - Dysstasia [Recovering/Resolving]
  - Blood pressure increased [Unknown]
  - Weight decreased [Unknown]
  - Lower respiratory tract infection [Unknown]

NARRATIVE: CASE EVENT DATE: 20150902
